FAERS Safety Report 8759782 (Version 2)
Quarter: 2012Q4

REPORT INFORMATION
  Report Type: 
  Country: DE (occurrence: DE)
  Receive Date: 20120829
  Receipt Date: 20120921
  Transmission Date: 20130627
  Serious: Yes (Other)
  Sender: FDA-Public Use
  Company Number: DE-BRISTOL-MYERS SQUIBB COMPANY-16864795

PATIENT
  Age: 62 Year
  Sex: Female

DRUGS (1)
  1. ABILIFY TABS [Suspect]
     Indication: MANIA
     Dosage: 10mg/d,then increased to15mg/day,reducd.10-13Jul12:10mg,14-23Jul12:15mg,24Jul-6Aug:20mg,7-19Aug:10mg
     Dates: start: 20120710

REACTIONS (2)
  - Vertigo [Recovered/Resolved]
  - Akathisia [Not Recovered/Not Resolved]
